FAERS Safety Report 8506507-X (Version None)
Quarter: 2012Q3

REPORT INFORMATION
  Report Type: 
  Country: None (occurrence: None)
  Receive Date: 20120712
  Receipt Date: 20120629
  Transmission Date: 20120928
  Serious: Yes (Other)
  Sender: FDA-Public Use
  Company Number: DE-FRI-1000036892

PATIENT
  Sex: Female

DRUGS (1)
  1. FOSFOMYCIN [Suspect]
     Indication: CYSTITIS
     Route: 048
     Dates: start: 20120622, end: 20120622

REACTIONS (5)
  - DERMATITIS BULLOUS [None]
  - RASH [None]
  - ACNE [None]
  - URTICARIA [None]
  - PRURITUS [None]
